FAERS Safety Report 23062803 (Version 1)
Quarter: 2023Q4

REPORT INFORMATION
  Report Type: Other
  Country: SE (occurrence: SE)
  Receive Date: 20231013
  Receipt Date: 20231013
  Transmission Date: 20240110
  Serious: Yes (Hospitalization)
  Sender: FDA-Public Use
  Company Number: None

PATIENT
  Age: 36 Year
  Sex: Male

DRUGS (4)
  1. LOSARTAN [Suspect]
     Active Substance: LOSARTAN
     Indication: Product used for unknown indication
     Dosage: 2500 MILLIGRAM, TOTAL; TABLET
     Route: 065
     Dates: start: 20230909, end: 20230909
  2. AMITRIPTYLINE [Suspect]
     Active Substance: AMITRIPTYLINE
     Indication: Product used for unknown indication
     Dosage: 750 MILLIGRAM, TOTAL; TABLET
     Route: 065
     Dates: start: 20230909, end: 20230909
  3. PROPIOMAZINE [Suspect]
     Active Substance: PROPIOMAZINE
     Indication: Product used for unknown indication
     Dosage: 500 MILLIGRAM, TOTAL
     Route: 065
     Dates: start: 20230909, end: 20230909
  4. QUETIAPINE [Suspect]
     Active Substance: QUETIAPINE
     Indication: Product used for unknown indication
     Dosage: 1500 MILLIGRAM, TOTAL
     Route: 065
     Dates: start: 20230909, end: 20230909

REACTIONS (3)
  - Suicidal ideation [None]
  - Tachycardia [None]
  - Toxicity to various agents [None]

NARRATIVE: CASE EVENT DATE: 20230909
